FAERS Safety Report 25202491 (Version 5)
Quarter: 2025Q3

REPORT INFORMATION
  Report Type: Spontaneous
  Country: JP (occurrence: JP)
  Receive Date: 20250416
  Receipt Date: 20250725
  Transmission Date: 20251021
  Serious: Yes (Hospitalization, Other)
  Sender: RADIUS PHARM
  Company Number: JP-RADIUS HEALTH, INC.-2024JP004689

PATIENT
  Age: 34 Year
  Sex: Male

DRUGS (18)
  1. ABALOPARATIDE [Suspect]
     Active Substance: ABALOPARATIDE
     Indication: Osteoporosis
     Dosage: 80 MICROGRAM, QD
     Route: 058
     Dates: start: 20240226, end: 20240617
  2. ABALOPARATIDE [Suspect]
     Active Substance: ABALOPARATIDE
     Dosage: 80 MICROGRAM, QD
     Route: 058
     Dates: start: 20250421, end: 20250425
  3. VALPROATE SODIUM [Suspect]
     Active Substance: VALPROATE SODIUM
     Indication: Progressive myoclonic epilepsy
     Dosage: 1000 MILLIGRAM, QD
     Route: 048
  4. ALFAROL [Suspect]
     Active Substance: ALFACALCIDOL
     Indication: Osteoporosis
     Dosage: 0.5 MICROGRAM, QD
     Route: 048
     Dates: start: 20231225, end: 20240617
  5. ZONISAMIDE [Concomitant]
     Active Substance: ZONISAMIDE
     Indication: Product used for unknown indication
     Dosage: 0.9 GRAM, QD
     Route: 048
  6. MYSTAN [Concomitant]
     Active Substance: CLOBAZAM
     Indication: Progressive myoclonic epilepsy
     Dosage: 10 GRAM, QD
     Route: 048
     Dates: start: 20071217
  7. LEVETIRACETAM [Concomitant]
     Active Substance: LEVETIRACETAM
     Indication: Progressive myoclonic epilepsy
     Dosage: 1200 GRAM, QD
     Route: 048
     Dates: start: 20181210
  8. FYCOMPA [Concomitant]
     Active Substance: PERAMPANEL
     Indication: Progressive myoclonic epilepsy
     Dosage: 4 GRAM, QD
     Route: 048
     Dates: start: 202004
  9. TALTIRELIN [Concomitant]
     Active Substance: TALTIRELIN
     Indication: Dentatorubral-pallidoluysian atrophy
     Dosage: 10 MILLIGRAM, QD
     Route: 048
  10. ARTANE [Concomitant]
     Active Substance: TRIHEXYPHENIDYL HYDROCHLORIDE
     Indication: Hypertonia
     Dosage: 6 GRAM, QD
     Route: 048
  11. TIZANIDINE [Concomitant]
     Active Substance: TIZANIDINE
     Indication: Hypertonia
     Dosage: 1 GRAM, QD
     Route: 048
  12. DANTRIUM [Concomitant]
     Active Substance: DANTROLENE SODIUM
     Indication: Hypertonia
     Dosage: 25 MILLIGRAM, QD
     Route: 048
  13. MIYA-BM [Concomitant]
     Active Substance: CLOSTRIDIUM BUTYRICUM SPORES STRAIN M-55
     Indication: Product used for unknown indication
     Dosage: 6 DOSAGE FORM, QD
     Route: 048
  14. TU-100 [Concomitant]
     Active Substance: ASIAN GINSENG\GINGER\ZANTHOXYLUM PIPERITUM FRUIT PULP
     Indication: Product used for unknown indication
     Dosage: 7.5 GRAM, QD
     Route: 048
  15. HERBALS [Concomitant]
     Active Substance: HERBALS
     Indication: Product used for unknown indication
     Dosage: 7.5 GRAM, QD
     Route: 048
  16. LEVOCARNITINE [Concomitant]
     Active Substance: LEVOCARNITINE
     Indication: Product used for unknown indication
     Dosage: 10 MILLILITER, QD
     Route: 048
  17. POTASSIUM CHLORIDE\SODIUM CHLORIDE\SODIUM LACTATE [Concomitant]
     Active Substance: POTASSIUM CHLORIDE\SODIUM CHLORIDE\SODIUM LACTATE
     Indication: Product used for unknown indication
     Dosage: 16 GRAM, QD
     Route: 048
  18. BOTOX [Concomitant]
     Active Substance: ONABOTULINUMTOXINA
     Indication: Muscle spasms
     Route: 030
     Dates: start: 20221014

REACTIONS (1)
  - Acute kidney injury [Recovering/Resolving]

NARRATIVE: CASE EVENT DATE: 20240617
